FAERS Safety Report 23698159 (Version 2)
Quarter: 2024Q2

REPORT INFORMATION
  Report Type: Spontaneous
  Country: DE (occurrence: DE)
  Receive Date: 20240402
  Receipt Date: 20240610
  Transmission Date: 20240716
  Serious: Yes (Other)
  Sender: FDA-Public Use
  Company Number: DE-BRISTOL-MYERS SQUIBB COMPANY-2024-043515

PATIENT
  Age: 79 Year
  Sex: Male
  Weight: 79.5 kg

DRUGS (12)
  1. CARBOPLATIN [Suspect]
     Active Substance: CARBOPLATIN
     Indication: Non-small cell lung cancer
     Dosage: 5 AUC - MG/MIN*ML
     Route: 042
     Dates: start: 20240111
  2. CARBOPLATIN [Suspect]
     Active Substance: CARBOPLATIN
     Dosage: 5 AUC - MG/MIN*ML
     Route: 042
     Dates: start: 20240201
  3. NIVOLUMAB [Suspect]
     Active Substance: NIVOLUMAB
     Indication: Non-small cell lung cancer
     Dosage: 360 MG
     Route: 042
     Dates: start: 20240111, end: 20240201
  4. PEMETREXED [Suspect]
     Active Substance: PEMETREXED
     Indication: Non-small cell lung cancer
     Dosage: 500 MG/M2
     Route: 042
     Dates: start: 20240111
  5. PEMETREXED [Suspect]
     Active Substance: PEMETREXED
     Dosage: 500 MG/M2
     Route: 042
     Dates: start: 20240201
  6. ENALAPRIL [Concomitant]
     Active Substance: ENALAPRIL
     Indication: Hypertension
     Dosage: TWICE DAILY
     Route: 048
  7. FLUTICASONE FUROATE\UMECLIDINIUM BROMIDE\VILANTEROL TRIFENATATE [Concomitant]
     Active Substance: FLUTICASONE FUROATE\UMECLIDINIUM BROMIDE\VILANTEROL TRIFENATATE
     Indication: Chronic obstructive pulmonary disease
     Dosage: INHALATIVE
     Route: 065
     Dates: start: 20231124
  8. FLUTICASONE FUROATE\UMECLIDINIUM BROMIDE\VILANTEROL TRIFENATATE [Concomitant]
     Active Substance: FLUTICASONE FUROATE\UMECLIDINIUM BROMIDE\VILANTEROL TRIFENATATE
     Dosage: INHALATIVE
     Route: 065
     Dates: start: 20231124
  9. FLUTICASONE FUROATE\UMECLIDINIUM BROMIDE\VILANTEROL TRIFENATATE [Concomitant]
     Active Substance: FLUTICASONE FUROATE\UMECLIDINIUM BROMIDE\VILANTEROL TRIFENATATE
     Dosage: INHALATIVE
     Route: 065
     Dates: start: 20231124
  10. METFORMIN [Concomitant]
     Active Substance: METFORMIN HYDROCHLORIDE
     Indication: Type 2 diabetes mellitus
     Dosage: 1000 MG
     Route: 048
  11. ALBUTEROL [Concomitant]
     Active Substance: ALBUTEROL
     Indication: Chronic obstructive pulmonary disease
     Dosage: P.R.N. (AS NEEDED)
     Route: 055
     Dates: start: 20231124
  12. SIMVASTATIN [Concomitant]
     Active Substance: SIMVASTATIN
     Indication: Hyperlipidaemia
     Dosage: DAILY
     Route: 048

REACTIONS (3)
  - Polyneuropathy [Not Recovered/Not Resolved]
  - General physical health deterioration [Recovered/Resolved]
  - Diarrhoea [Recovered/Resolved]

NARRATIVE: CASE EVENT DATE: 20240115
